FAERS Safety Report 9332748 (Version 1)
Quarter: 2013Q2

REPORT INFORMATION
  Report Type: Spontaneous
  Country: US (occurrence: US)
  Receive Date: 20130606
  Receipt Date: 20130606
  Transmission Date: 20140414
  Serious: Yes (Other)
  Sender: FDA-Public Use
  Company Number: US-JNJFOC-20130319071

PATIENT
  Age: 83 Year
  Sex: Male
  Weight: 61.24 kg

DRUGS (5)
  1. EXTRA STRENGTH TYLENOL [Suspect]
     Indication: PAIN
     Route: 048
     Dates: start: 2004, end: 20130328
  2. MULTIVITAMINS [Concomitant]
     Indication: GENERAL PHYSICAL CONDITION
     Route: 065
     Dates: start: 2004
  3. VITAMIN B12 [Concomitant]
     Indication: ANAEMIA
     Route: 065
     Dates: start: 2004
  4. PROPRANOLOL [Concomitant]
     Indication: TREMOR
     Route: 065
     Dates: start: 2004, end: 2011
  5. PROPRANOLOL [Concomitant]
     Indication: CARDIAC DISORDER
     Route: 065
     Dates: start: 2004, end: 2011

REACTIONS (6)
  - Presyncope [Recovered/Resolved]
  - Respiratory arrest [Recovered/Resolved]
  - Choking [Recovered/Resolved]
  - Dysphagia [Recovered/Resolved]
  - Throat irritation [Recovered/Resolved]
  - Drug ineffective [Unknown]
